FAERS Safety Report 22081040 (Version 1)
Quarter: 2023Q1

REPORT INFORMATION
  Report Type: Spontaneous
  Country: US (occurrence: US)
  Receive Date: 20230309
  Receipt Date: 20230309
  Transmission Date: 20230417
  Serious: Yes (Other)
  Sender: FDA-Public Use
  Company Number: US-BRISTOL-MYERS SQUIBB COMPANY-2023-034142

PATIENT
  Age: 83 Year
  Sex: Male
  Weight: 82.3 kg

DRUGS (2)
  1. REVLIMID [Suspect]
     Active Substance: LENALIDOMIDE
     Indication: Plasma cell myeloma
     Dosage: 21 DAYS ON 7 DAYS OFF
     Route: 048
     Dates: start: 20110215, end: 20121023
  2. DEXAMETHASONE SODIUM PHOSPHATE\NEOMYCIN SULFATE [Suspect]
     Active Substance: DEXAMETHASONE SODIUM PHOSPHATE\NEOMYCIN SULFATE
     Indication: Product used for unknown indication
     Dosage: DAY 1, 8, 15, 22- PO HIGH DOSE
     Route: 048
     Dates: start: 20110215, end: 20121023

REACTIONS (1)
  - Histoplasmosis cutaneous [Unknown]
